FAERS Safety Report 23353307 (Version 1)
Quarter: 2023Q4

REPORT INFORMATION
  Report Type: Spontaneous
  Country: FR (occurrence: FR)
  Receive Date: 20231231
  Receipt Date: 20231231
  Transmission Date: 20240109
  Serious: Yes (Hospitalization, Other)
  Sender: FDA-Public Use
  Company Number: FR-AFSSAPS-MA2023002872

PATIENT
  Age: 86 Year
  Sex: Female

DRUGS (2)
  1. PREDNISONE [Suspect]
     Active Substance: PREDNISONE
     Indication: Arteritis
     Dosage: 1 DOSAGE FORM 1 TOTAL
     Route: 048
     Dates: end: 20230415
  2. KARDEGIC [Suspect]
     Active Substance: ASPIRIN DL-LYSINE
     Indication: Platelet aggregation increased
     Dosage: 1 DOSAGE FORM 1 TOTAL
     Route: 048
     Dates: end: 20230415

REACTIONS (2)
  - Gastroduodenal ulcer [Recovered/Resolved]
  - Condition aggravated [Recovered/Resolved]

NARRATIVE: CASE EVENT DATE: 20230415
